FAERS Safety Report 24691414 (Version 4)
Quarter: 2025Q4

REPORT INFORMATION
  Report Type: Spontaneous
  Country: US (occurrence: US)
  Receive Date: 20241203
  Receipt Date: 20251006
  Transmission Date: 20260119
  Serious: Yes (Other)
  Sender: PFIZER
  Company Number: US-PFIZER INC-PV202400041865

PATIENT
  Age: 72 Year
  Sex: Female

DRUGS (1)
  1. IBRANCE [Suspect]
     Active Substance: PALBOCICLIB
     Indication: Breast cancer female
     Dosage: 100 MG, CYCLIC TAKE 1 TABLET BY MOUTH DAILY FOR 21 DAYS THEN REST FOR 7 DAYS
     Route: 048

REACTIONS (4)
  - Breast cancer [Unknown]
  - Malignant neoplasm progression [Unknown]
  - Metastases to bone [Unknown]
  - Full blood count abnormal [Unknown]
